FAERS Safety Report 13820448 (Version 1)
Quarter: 2017Q3

REPORT INFORMATION
  Report Type: Spontaneous
  Country: DE (occurrence: DE)
  Receive Date: 20170801
  Receipt Date: 20170801
  Transmission Date: 20171127
  Serious: Yes (Other)
  Sender: FDA-Public Use
  Company Number: DE-MYLANLABS-2017M1045140

PATIENT

DRUGS (7)
  1. PANTOPRAZOLE [Suspect]
     Active Substance: PANTOPRAZOLE
     Dosage: ONE TABLET BEFORE BREAKFAST
     Route: 048
     Dates: start: 20170709, end: 20170711
  2. GLIMEPIRID [Concomitant]
     Active Substance: GLIMEPIRIDE
  3. PANTOPRAZOLE [Suspect]
     Active Substance: PANTOPRAZOLE
     Indication: PRODUCT USED FOR UNKNOWN INDICATION
     Dosage: ONE TABLET IN THE MORNING AND ONE TABLET IN THE EVENING
     Route: 048
     Dates: start: 20170321, end: 20170428
  4. PANTOPRAZOLE [Suspect]
     Active Substance: PANTOPRAZOLE
     Dosage: ONE TABLET IN THE MORNING
     Route: 048
     Dates: start: 20170429, end: 20170515
  5. XELEVIA [Concomitant]
     Active Substance: SITAGLIPTIN PHOSPHATE
  6. INSULIN [Concomitant]
     Active Substance: INSULIN NOS
  7. FORMATRIS DA [Concomitant]

REACTIONS (2)
  - Respiratory distress [Unknown]
  - Dyspnoea [Unknown]

NARRATIVE: CASE EVENT DATE: 2017
